FAERS Safety Report 4805501-X (Version None)
Quarter: 2005Q4

REPORT INFORMATION
  Report Type: 
  Country: None (occurrence: None)
  Receive Date: 20051018
  Receipt Date: 20051003
  Transmission Date: 20060501
  Serious: Yes (Hospitalization)
  Sender: FDA-Public Use
  Company Number: 2005-0008765

PATIENT
  Age: 32 Year
  Sex: Male
  Weight: 64 kg

DRUGS (10)
  1. VIREAD [Suspect]
     Indication: HIV INFECTION
     Dosage: 300 MG, 1 IN 1 D, ORAL
     Route: 048
     Dates: start: 20030307
  2. ATAZANAVIR (ATAZANAVIR) [Concomitant]
  3. RITONAVIR (RITONAVIR) [Concomitant]
  4. ABACAVIR (ABACAVIR) [Concomitant]
  5. RIFABUTIN (RIFABUTIN) [Concomitant]
  6. ETHAMBUTOL (ETHAMBUTOL) [Concomitant]
  7. AZITHROMYCIN [Concomitant]
  8. AMITRIPTYLINE HCL [Concomitant]
  9. CYCLIZINE (CYCLIZINE) [Concomitant]
  10. PERCIABALINE (PREGABALIN) [Concomitant]

REACTIONS (2)
  - HYPERCALCAEMIA [None]
  - RENAL IMPAIRMENT [None]
